FAERS Safety Report 10443147 (Version 9)
Quarter: 2015Q2

REPORT INFORMATION
  Report Type: Report from Study
  Country: BR (occurrence: BR)
  Receive Date: 20140909
  Receipt Date: 20150528
  Transmission Date: 20150821
  Serious: Yes (Other)
  Sender: FDA-Public Use
  Company Number: BR-SA-2014SA121885

PATIENT
  Age: 33 Year
  Sex: Male
  Weight: 96 kg

DRUGS (3)
  1. LANTUS [Suspect]
     Active Substance: INSULIN GLARGINE
     Route: 065
     Dates: start: 2011
  2. APIDRA [Suspect]
     Active Substance: INSULIN GLULISINE
     Route: 065
     Dates: start: 2011
  3. OLANZAPINE. [Suspect]
     Active Substance: OLANZAPINE
     Indication: SCHIZOPHRENIA
     Dosage: STRENGTH: 10 MG
     Route: 065

REACTIONS (10)
  - Blood cholesterol increased [Unknown]
  - Depression [Not Recovered/Not Resolved]
  - Abdominal pain [Unknown]
  - Liver disorder [Unknown]
  - Schizophrenia [Recovering/Resolving]
  - Gastritis [Recovering/Resolving]
  - Bipolar disorder [Recovering/Resolving]
  - Blood glucose increased [Recovered/Resolved]
  - Drug ineffective [Unknown]
  - Blood glucose abnormal [Unknown]

NARRATIVE: CASE EVENT DATE: 201501
